FAERS Safety Report 8741181 (Version 3)
Quarter: 2018Q4

REPORT INFORMATION
  Report Type: Spontaneous
  Country: US (occurrence: US)
  Receive Date: 20120824
  Receipt Date: 20181115
  Transmission Date: 20190205
  Serious: No
  Sender: FDA-Public Use
  Company Number: US-ASTRAZENECA-2012SE02513

PATIENT
  Age: 81 Year
  Sex: Female
  Weight: 50.8 kg

DRUGS (7)
  1. SYMBICORT [Suspect]
     Active Substance: BUDESONIDE\FORMOTEROL FUMARATE DIHYDRATE
     Indication: CHRONIC OBSTRUCTIVE PULMONARY DISEASE
     Dosage: 2 PUFFS IN 24 HOURS
     Route: 055
     Dates: start: 20180812, end: 20180913
  2. FLUTICASONE. [Concomitant]
     Active Substance: FLUTICASONE
  3. SYMBICORT [Suspect]
     Active Substance: BUDESONIDE\FORMOTEROL FUMARATE DIHYDRATE
     Indication: CHRONIC OBSTRUCTIVE PULMONARY DISEASE
     Dosage: 80-4.5 MCG, 2 PUFFS 2 TIMES A DAY
     Route: 055
     Dates: start: 20180730
  4. SYMBICORT [Suspect]
     Active Substance: BUDESONIDE\FORMOTEROL FUMARATE DIHYDRATE
     Indication: CHRONIC OBSTRUCTIVE PULMONARY DISEASE
     Route: 055
  5. SYMBICORT [Suspect]
     Active Substance: BUDESONIDE\FORMOTEROL FUMARATE DIHYDRATE
     Indication: EMPHYSEMA
     Dosage: 80-4.5 MCG, 2 PUFFS 2 TIMES A DAY
     Route: 055
     Dates: start: 20180730
  6. SYMBICORT [Suspect]
     Active Substance: BUDESONIDE\FORMOTEROL FUMARATE DIHYDRATE
     Indication: EMPHYSEMA
     Route: 055
  7. SYMBICORT [Suspect]
     Active Substance: BUDESONIDE\FORMOTEROL FUMARATE DIHYDRATE
     Indication: EMPHYSEMA
     Dosage: 2 PUFFS IN 24 HOURS
     Route: 055
     Dates: start: 20180812, end: 20180913

REACTIONS (5)
  - Sensation of foreign body [Unknown]
  - Muscle spasms [Unknown]
  - Throat irritation [Unknown]
  - Drug hypersensitivity [Unknown]
  - Therapy cessation [Unknown]
